FAERS Safety Report 5104676-5 (Version None)
Quarter: 2006Q3

REPORT INFORMATION
  Report Type: 
  Country: None (occurrence: None)
  Receive Date: 20060911
  Receipt Date: 20060822
  Transmission Date: 20061208
  Serious: Yes (Hospitalization)
  Sender: FDA-Public Use
  Company Number: US200607000465

PATIENT
  Age: 62 Year
  Sex: Female

DRUGS (3)
  1. GEMCITABINE HYDROCHLORIDE (GEMCITABINE HYDROCHLORIDE) [Suspect]
     Indication: ADENOCARCINOMA PANCREAS
     Dosage: 1750 MG, INTRAVENOUS
     Route: 042
     Dates: start: 20060403
  2. OXALIPLATIN [Suspect]
     Indication: PANCREATIC CARCINOMA
     Dosage: 175 MG, INTRAVENOUS
     Route: 042
     Dates: start: 20060404
  3. AVASTIN [Suspect]
     Indication: PANCREATIC CARCINOMA
     Dosage: 655 MG, INTRAVENOUS
     Route: 042
     Dates: start: 20060403

REACTIONS (8)
  - ALANINE AMINOTRANSFERASE INCREASED [None]
  - ASPARTATE AMINOTRANSFERASE INCREASED [None]
  - BACK PAIN [None]
  - BILIARY TRACT DISORDER [None]
  - BLOOD GLUCOSE INCREASED [None]
  - FALL [None]
  - REVERSIBLE POSTERIOR LEUKOENCEPHALOPATHY SYNDROME [None]
  - STENT PLACEMENT [None]
